FAERS Safety Report 9663557 (Version 2)
Quarter: 2014Q1

REPORT INFORMATION
  Report Type: Spontaneous
  Country: US (occurrence: US)
  Receive Date: 20131101
  Receipt Date: 20140213
  Transmission Date: 20141002
  Serious: No
  Sender: FDA-Public Use
  Company Number: US-PFIZER INC-2013311140

PATIENT
  Age: 56 Year
  Sex: Female

DRUGS (5)
  1. LYRICA [Suspect]
     Dosage: UNK
  2. METFORMIN HCL [Suspect]
     Dosage: UNK
  3. LODINE [Suspect]
     Dosage: UNK
  4. TEQUIN [Suspect]
     Dosage: UNK
  5. IODINE [Suspect]
     Dosage: UNK

REACTIONS (1)
  - Drug hypersensitivity [Unknown]
